FAERS Safety Report 21171755 (Version 1)
Quarter: 2022Q3

REPORT INFORMATION
  Report Type: Spontaneous
  Country: CN (occurrence: CN)
  Receive Date: 20220804
  Receipt Date: 20220804
  Transmission Date: 20221027
  Serious: Yes (Other)
  Sender: FDA-Public Use
  Company Number: CN-PFIZER INC-PV202200033224

PATIENT
  Age: 19 Year
  Sex: Female

DRUGS (3)
  1. MISOPROSTOL [Suspect]
     Active Substance: MISOPROSTOL
     Indication: Labour induction
     Dosage: UNK
     Route: 048
     Dates: start: 20210414
  2. OXYTOCIN [Suspect]
     Active Substance: OXYTOCIN
  3. MIFEPRISTONE [Concomitant]
     Active Substance: MIFEPRISTONE
     Indication: Labour induction
     Dosage: UNK
     Route: 048
     Dates: start: 20210414

REACTIONS (7)
  - Condition aggravated [Recovering/Resolving]
  - Hypoxia [Recovering/Resolving]
  - Wheezing [Recovering/Resolving]
  - Chest discomfort [Recovering/Resolving]
  - Cyanosis [Recovering/Resolving]
  - Tachycardia [Recovering/Resolving]
  - Off label use [Unknown]

NARRATIVE: CASE EVENT DATE: 20210414
